FAERS Safety Report 12981117 (Version 1)
Quarter: 2016Q4

REPORT INFORMATION
  Report Type: Spontaneous
  Country: US (occurrence: US)
  Receive Date: 20161128
  Receipt Date: 20161128
  Transmission Date: 20170207
  Serious: Yes (Other)
  Sender: FDA-Public Use
  Company Number: US-B.I. PHARMACEUTICALS,INC./RIDGEFIELD-2016-BI-081070

PATIENT
  Age: 74 Year
  Sex: Male

DRUGS (2)
  1. PRAXBIND [Suspect]
     Active Substance: IDARUCIZUMAB
     Indication: SUBARACHNOID HAEMORRHAGE
  2. PRAXBIND [Suspect]
     Active Substance: IDARUCIZUMAB
     Indication: CEREBRAL HAEMORRHAGE
     Dosage: 2.5 GRAM X  2 DOSES
     Route: 065

REACTIONS (1)
  - Coagulopathy [Unknown]
